FAERS Safety Report 9845067 (Version 2)
Quarter: 2014Q3

REPORT INFORMATION
  Report Type: Spontaneous
  Country: SZ (occurrence: None)
  Receive Date: 20140122
  Receipt Date: 20140701
  Transmission Date: 20150326
  Serious: Yes (Hospitalization)
  Sender: FDA-Public Use
  Company Number: 20130762

PATIENT
  Age: 42 Year
  Sex: Male

DRUGS (13)
  1. QUESTRAN [Concomitant]
     Active Substance: CHOLESTYRAMINE
  2. DEDROGYL [Concomitant]
     Active Substance: CALCIFEDIOL
  3. ONENOBIOL [Concomitant]
  4. FERINJECT [Suspect]
     Active Substance: FERRIC CARBOXYMALTOSE
     Indication: PRODUCT USED FOR UNKNOWN INDICATION
     Route: 040
  5. IMODIUM [Concomitant]
     Active Substance: LOPERAMIDE HYDROCHLORIDE
  6. FERINJECT [Suspect]
     Active Substance: FERRIC CARBOXYMALTOSE
     Indication: PRODUCT USED FOR UNKNOWN INDICATION
     Route: 042
     Dates: start: 201110, end: 20130618
  7. LEXOMIL [Concomitant]
     Active Substance: BROMAZEPAM
  8. DAFALGAN CODEINE [Concomitant]
     Active Substance: ACETAMINOPHEN\CODEINE PHOSPHATE
  9. VITAMIN B12 [Concomitant]
     Active Substance: CYANOCOBALAMIN
  10. INEXIUM [Concomitant]
     Active Substance: ESOMEPRAZOLE
  11. LEVOTHYROX [Concomitant]
     Active Substance: LEVOTHYROXINE
  12. PROZAC [Concomitant]
     Active Substance: FLUOXETINE HYDROCHLORIDE
  13. VITAMIN D3 [Concomitant]
     Active Substance: CHOLECALCIFEROL

REACTIONS (5)
  - Muscle spasms [None]
  - Myalgia [None]
  - Urinary tract disorder [None]
  - Gastrectomy [None]
  - Hypophosphataemia [None]

NARRATIVE: CASE EVENT DATE: 2012
